FAERS Safety Report 25638461 (Version 1)
Quarter: 2025Q3

REPORT INFORMATION
  Report Type: Spontaneous
  Country: US (occurrence: US)
  Receive Date: 20250804
  Receipt Date: 20250804
  Transmission Date: 20251021
  Serious: No
  Sender: PFIZER
  Company Number: US-PFIZER INC-202500154944

PATIENT
  Age: 64 Year
  Sex: Female

DRUGS (7)
  1. XELJANZ XR [Suspect]
     Active Substance: TOFACITINIB CITRATE
     Dosage: 11 MG, DAILY (30^S)
     Route: 048
  2. BRILINTA [Concomitant]
     Active Substance: TICAGRELOR
  3. FOLIC ACID [Concomitant]
     Active Substance: FOLIC ACID
  4. LEVETIRACETAM [Concomitant]
     Active Substance: LEVETIRACETAM
  5. MOUNJARO [Concomitant]
     Active Substance: TIRZEPATIDE
  6. TIAGABINE HYDROCHLORIDE [Concomitant]
     Active Substance: TIAGABINE HYDROCHLORIDE
  7. TICAGRELOR [Concomitant]
     Active Substance: TICAGRELOR

REACTIONS (1)
  - Drug ineffective [Not Recovered/Not Resolved]
